FAERS Safety Report 4620854-3 (Version None)
Quarter: 2005Q1

REPORT INFORMATION
  Report Type: 
  Country: None (occurrence: None)
  Receive Date: 20050325
  Receipt Date: 20050317
  Transmission Date: 20050727
  Serious: Yes (Hospitalization)
  Sender: FDA-Public Use
  Company Number: 2005UW04247

PATIENT
  Age: 43 Year
  Sex: Female

DRUGS (5)
  1. ZESTORETIC [Suspect]
     Indication: OEDEMA PERIPHERAL
     Dosage: 20/12.5 MG
     Dates: start: 20020523, end: 20020617
  2. TRIAMTERENE AND HYDROCHLOROTHIAZIDE [Suspect]
     Dates: end: 20020617
  3. PIROXICAM [Suspect]
     Dates: end: 20020624
  4. ROFECOXIB [Concomitant]
     Dates: end: 20020624
  5. FUROSEMIDE [Concomitant]

REACTIONS (5)
  - HYPERCALCAEMIA [None]
  - HYPERKALAEMIA [None]
  - RADICULOTOMY [None]
  - REFLUX OESOPHAGITIS [None]
  - RENAL FAILURE [None]
